FAERS Safety Report 18646807 (Version 1)
Quarter: 2020Q4

REPORT INFORMATION
  Report Type: Spontaneous
  Country: US (occurrence: US)
  Receive Date: 20201222
  Receipt Date: 20201222
  Transmission Date: 20210114
  Serious: No
  Sender: FDA-Public Use
  Company Number: US-TELIGENT, INC-20200900048

PATIENT
  Sex: Female

DRUGS (3)
  1. ZANTAC [Suspect]
     Active Substance: RANITIDINE HYDROCHLORIDE
     Dosage: UNK
     Dates: start: 20200731, end: 20200731
  2. ZANTAC [Suspect]
     Active Substance: RANITIDINE HYDROCHLORIDE
     Dosage: UNK
     Dates: start: 20200831
  3. ATROPINE. [Concomitant]
     Active Substance: ATROPINE
     Indication: SCHIZOPHRENIA
     Dosage: 1 MILLIGRAM, BID (1 MG IN MORNING AND 1 MG AT NIGHT)

REACTIONS (9)
  - Illness [Unknown]
  - Memory impairment [Unknown]
  - Mental disability [Unknown]
  - Fatigue [Unknown]
  - Mental disorder [Unknown]
  - Learning disability [Unknown]
  - Eye pain [Unknown]
  - Eye disorder [Unknown]
  - Confusional state [Unknown]

NARRATIVE: CASE EVENT DATE: 2020
